FAERS Safety Report 16699069 (Version 1)
Quarter: 2019Q3

REPORT INFORMATION
  Report Type: Spontaneous
  Country: US (occurrence: US)
  Receive Date: 20190813
  Receipt Date: 20190813
  Transmission Date: 20191004
  Serious: No
  Sender: FDA-Public Use
  Company Number: US-PERRIGO-19US004349

PATIENT
  Age: 84 Year
  Sex: Female
  Weight: 46.71 kg

DRUGS (3)
  1. ASMANEX HFA [Concomitant]
     Active Substance: MOMETASONE FUROATE
     Indication: COUGH
     Dosage: QD
     Route: 065
     Dates: start: 2018
  2. LORATADINE. [Suspect]
     Active Substance: LORATADINE
     Indication: RHINORRHOEA
     Dosage: 10 MG, SINGLE
     Route: 048
     Dates: start: 20190402, end: 20190402
  3. FLUTICASONE. [Suspect]
     Active Substance: FLUTICASONE
     Indication: RHINORRHOEA
     Dosage: 1 SPRAY EACH NOSTRIL, SINGLE
     Route: 045
     Dates: start: 20190402, end: 20190402

REACTIONS (4)
  - Asthenia [Not Recovered/Not Resolved]
  - Loss of consciousness [Recovered/Resolved]
  - Off label use [Recovered/Resolved]
  - Abdominal discomfort [Not Recovered/Not Resolved]

NARRATIVE: CASE EVENT DATE: 20190403
